FAERS Safety Report 4362198-3 (Version None)
Quarter: 2004Q2

REPORT INFORMATION
  Report Type: 
  Country: None (occurrence: None)
  Receive Date: 20040521
  Receipt Date: 20040317
  Transmission Date: 20050107
  Serious: Yes (Death)
  Sender: FDA-Public Use
  Company Number: 200411137FR

PATIENT
  Age: 64 Year
  Sex: Male
  Weight: 65 kg

DRUGS (5)
  1. KETEK [Suspect]
     Indication: SINUSITIS
     Route: 048
     Dates: start: 20040227, end: 20040302
  2. PREVISCAN [Concomitant]
     Route: 048
     Dates: start: 20031001
  3. ACETYLCYSTEINE [Concomitant]
     Route: 048
     Dates: start: 20040227, end: 20040302
  4. NECYRANE [Concomitant]
     Route: 045
     Dates: start: 20040227, end: 20040302
  5. OROPIVALONE [Concomitant]
     Indication: LARYNGEAL DISORDER
     Route: 048
     Dates: start: 20040227, end: 20040302

REACTIONS (16)
  - AORTIC VALVE DISEASE [None]
  - ASTHENIA [None]
  - CARDIAC FAILURE [None]
  - CORONARY ARTERY ATHEROSCLEROSIS [None]
  - CORONARY ARTERY THROMBOSIS [None]
  - COUGH [None]
  - DYSPNOEA AT REST [None]
  - ENDOCARDITIS [None]
  - ISCHAEMIA [None]
  - LEFT VENTRICULAR FAILURE [None]
  - MITRAL VALVE INCOMPETENCE [None]
  - MYOCARDIAL INFARCTION [None]
  - PULMONARY OEDEMA [None]
  - SINUS TACHYCARDIA [None]
  - STAPHYLOCOCCAL ABSCESS [None]
  - TACHYCARDIA [None]
